FAERS Safety Report 7641451-1 (Version None)
Quarter: 2011Q3

REPORT INFORMATION
  Report Type: 
  Country: None (occurrence: None)
  Receive Date: 20110727
  Receipt Date: 20110727
  Transmission Date: 20111222
  Serious: No
  Sender: FDA-Public Use
  Company Number: None

PATIENT
  Sex: Female

DRUGS (1)
  1. ENBREL [Suspect]
     Dosage: 50MG WEEKLY SQ
     Route: 058
     Dates: start: 20080101, end: 20110721

REACTIONS (2)
  - DIZZINESS [None]
  - AMNESIA [None]
